FAERS Safety Report 5979003-1 (Version None)
Quarter: 2008Q4

REPORT INFORMATION
  Report Type: 
  Country: None (occurrence: None)
  Receive Date: 20081204
  Receipt Date: 20081127
  Transmission Date: 20090506
  Serious: Yes (Hospitalization)
  Sender: FDA-Public Use
  Company Number: SA-ROCHE-599817

PATIENT
  Age: 40 Year
  Sex: Male

DRUGS (10)
  1. CEFTRIAXONE SODIUM [Suspect]
     Route: 042
  2. SULFAMETHOXAZOLE AND TRIMETHOPRIM [Suspect]
     Dosage: TMP 400 MG, SMX 2 GRAM.
     Route: 042
  3. METRONIDAZOLE [Concomitant]
     Route: 042
  4. RIFAMPICIN [Concomitant]
     Route: 048
  5. ISONIAZID [Concomitant]
     Route: 048
  6. PYRAZINAMIDE [Concomitant]
     Route: 048
  7. ETHAMBUTOL HYDROCHLORIDE [Concomitant]
     Route: 048
  8. FLUCONAZOLE [Concomitant]
  9. MINOCYCLINE HCL [Concomitant]
  10. MEROPENEM [Concomitant]

REACTIONS (2)
  - BRAIN ABSCESS [None]
  - LEUKOPENIA [None]
